FAERS Safety Report 8617033-1 (Version None)
Quarter: 2012Q3

REPORT INFORMATION
  Report Type: 
  Country: None (occurrence: None)
  Receive Date: 20120823
  Receipt Date: 20120814
  Transmission Date: 20120928
  Serious: Yes (Other)
  Sender: FDA-Public Use
  Company Number: US-ASTRAZENECA-2010SE41121

PATIENT
  Age: 86 Year
  Sex: Female

DRUGS (2)
  1. MACROBID [Interacting]
  2. NEXIUM [Suspect]
     Route: 048

REACTIONS (6)
  - CARDIAC DISORDER [None]
  - MALAISE [None]
  - MYOCARDIAL INFARCTION [None]
  - DRUG INTERACTION [None]
  - DRUG DOSE OMISSION [None]
  - DYSPEPSIA [None]
